FAERS Safety Report 7531297 (Version 3)
Quarter: 2013Q4

REPORT INFORMATION
  Report Type: Spontaneous
  Country: US (occurrence: US)
  Receive Date: 20100806
  Receipt Date: 20131107
  Transmission Date: 20140711
  Serious: Yes (Hospitalization, Other)
  Sender: FDA-Public Use
  Company Number: US-BAYER-201029716NA

PATIENT
  Age: 33 Year
  Sex: Female
  Weight: 75.28 kg

DRUGS (1)
  1. YAZ [Suspect]
     Indication: CONTRACEPTION
     Dosage: UNK UNK, UNK
     Route: 048
     Dates: start: 200711, end: 200801

REACTIONS (2)
  - Gallbladder disorder [Unknown]
  - Cholecystitis [None]
